FAERS Safety Report 7353084-5 (Version None)
Quarter: 2011Q1

REPORT INFORMATION
  Report Type: 
  Country: None (occurrence: None)
  Receive Date: 20110315
  Receipt Date: 20110311
  Transmission Date: 20110831
  Serious: Yes (Hospitalization)
  Sender: FDA-Public Use
  Company Number: Z0007984A

PATIENT
  Sex: Male
  Weight: 58.5 kg

DRUGS (2)
  1. GW685698 + GW642444 INHALATION POWDER [Suspect]
     Indication: CHRONIC OBSTRUCTIVE PULMONARY DISEASE
     Route: 055
     Dates: start: 20100818
  2. ADVAIR DISKUS 100/50 [Suspect]
     Indication: CHRONIC OBSTRUCTIVE PULMONARY DISEASE
     Route: 055
     Dates: start: 20100722, end: 20100818

REACTIONS (1)
  - LUNG ABSCESS [None]
